FAERS Safety Report 12535983 (Version 1)
Quarter: 2016Q3

REPORT INFORMATION
  Report Type: Spontaneous
  Country: None (occurrence: None)
  Receive Date: 20160706
  Receipt Date: 20160706
  Transmission Date: 20161109
  Serious: Yes (Other)
  Sender: FDA-Public Use
  Company Number: None

PATIENT
  Age: 57 Year
  Sex: Female
  Weight: 74.39 kg

DRUGS (1)
  1. PACLITAXEL, 6 MG/ML TEVA [Suspect]
     Active Substance: PACLITAXEL
     Route: 041
     Dates: start: 20160523, end: 20160705

REACTIONS (1)
  - Rash [None]

NARRATIVE: CASE EVENT DATE: 20160627
